FAERS Safety Report 9096063 (Version 2)
Quarter: 2013Q1

REPORT INFORMATION
  Report Type: Report from Study
  Country: BR (occurrence: BR)
  Receive Date: 20130207
  Receipt Date: 20130225
  Transmission Date: 20140127
  Serious: Yes (Hospitalization, Disabling, Other)
  Sender: FDA-Public Use
  Company Number: BR-ROCHE-1170408

PATIENT
  Age: 61 None
  Sex: Female
  Weight: 72 kg

DRUGS (14)
  1. ACTEMRA [Suspect]
     Indication: PRODUCT USED FOR UNKNOWN INDICATION
     Route: 065
     Dates: start: 20100801, end: 20130101
  2. BENICAR [Concomitant]
     Route: 065
  3. ASPIRIN [Concomitant]
  4. OMEPRAZOLE [Concomitant]
  5. OMEGA 3 [Concomitant]
  6. VITAMIN E [Concomitant]
  7. VIVISCAL [Concomitant]
  8. NEXIUM [Concomitant]
     Route: 065
  9. CRESTOR [Concomitant]
  10. FLUCONAZOLE [Concomitant]
  11. MOTILIUM (BRAZIL) [Concomitant]
  12. CLEXANE [Concomitant]
  13. CYMBALTA [Concomitant]
  14. LACTULONA [Concomitant]

REACTIONS (5)
  - Brown-Sequard syndrome [Not Recovered/Not Resolved]
  - Alopecia [Unknown]
  - Urinary tract infection [Not Recovered/Not Resolved]
  - Myelitis [Unknown]
  - Urinary tract disorder [Unknown]
